FAERS Safety Report 6339470-0 (Version None)
Quarter: 2009Q3

REPORT INFORMATION
  Report Type: 
  Country: None (occurrence: None)
  Receive Date: 20090903
  Receipt Date: 20090825
  Transmission Date: 20100115
  Serious: Yes (Hospitalization, Other)
  Sender: FDA-Public Use
  Company Number: US-BAXTER-2009BH012772

PATIENT
  Age: 58 Year
  Sex: Male
  Weight: 60 kg

DRUGS (11)
  1. FEIBA VH IMMUNO [Suspect]
     Indication: HAEMOSTASIS
     Route: 042
     Dates: start: 20030908, end: 20030910
  2. FEIBA VH IMMUNO [Suspect]
     Route: 042
     Dates: start: 20030910, end: 20030918
  3. FEIBA VH IMMUNO [Suspect]
     Route: 042
     Dates: start: 20030918, end: 20030919
  4. AVALIDE [Concomitant]
     Indication: HYPERTENSION
     Route: 048
     Dates: start: 20030908
  5. OXYCODONE [Concomitant]
     Indication: PAIN
     Route: 048
     Dates: start: 20030908, end: 20030908
  6. LEVOFLOXACIN [Concomitant]
     Indication: DRUG USE FOR UNKNOWN INDICATION
     Route: 048
     Dates: start: 20030908
  7. CEFTAZIDIME [Concomitant]
     Indication: DRUG USE FOR UNKNOWN INDICATION
     Route: 042
     Dates: start: 20030908
  8. BACITRACIN [Concomitant]
     Indication: DRUG USE FOR UNKNOWN INDICATION
  9. VANCOMYCIN [Concomitant]
     Indication: DRUG USE FOR UNKNOWN INDICATION
     Route: 042
     Dates: start: 20030908
  10. METOPROLOL [Concomitant]
     Indication: DRUG USE FOR UNKNOWN INDICATION
     Route: 048
     Dates: start: 20030919
  11. NITROGLYCERIN [Concomitant]
     Indication: DRUG USE FOR UNKNOWN INDICATION
     Route: 061
     Dates: start: 20030919

REACTIONS (3)
  - CARDIOMEGALY [None]
  - MYOCARDIAL INFARCTION [None]
  - PULMONARY OEDEMA [None]
